FAERS Safety Report 14839864 (Version 1)
Quarter: 2018Q2

REPORT INFORMATION
  Report Type: Other
  Country: DE (occurrence: DE)
  Receive Date: 20180503
  Receipt Date: 20180503
  Transmission Date: 20180711
  Serious: Yes (Hospitalization)
  Sender: FDA-Public Use
  Company Number: DE-MACLEODS PHARMACEUTICALS US LTD-MAC2018012848

PATIENT

DRUGS (3)
  1. CLARITHROMYCIN 500 MG [Suspect]
     Active Substance: CLARITHROMYCIN
     Indication: PRODUCT USED FOR UNKNOWN INDICATION
     Dosage: 500 MILLIGRAM, BID (1-0-1-0 FOR 7 DAYS)
     Route: 065
  2. AMOXICILLIN. [Suspect]
     Active Substance: AMOXICILLIN
     Indication: PRODUCT USED FOR UNKNOWN INDICATION
     Dosage: 1000 MILLIGRAM, BID (1-0-1-0 FOR 7 DAYS)
     Route: 065
  3. PANTOPRAZOLE [Suspect]
     Active Substance: PANTOPRAZOLE
     Indication: PRODUCT USED FOR UNKNOWN INDICATION
     Dosage: 40 MILLIGRAM, BID, 1-0-1-0 FOR 14 DAYS
     Route: 065

REACTIONS (1)
  - Eczema [Unknown]

NARRATIVE: CASE EVENT DATE: 20160701
